FAERS Safety Report 4613314-7 (Version None)
Quarter: 2005Q1

REPORT INFORMATION
  Report Type: 
  Country: None (occurrence: None)
  Receive Date: 20050315
  Receipt Date: 20050228
  Transmission Date: 20050727
  Serious: Yes (Hospitalization, Other)
  Sender: FDA-Public Use
  Company Number: 202772

PATIENT
  Sex: Female

DRUGS (6)
  1. AVONEX [Suspect]
     Indication: MULTIPLE SCLEROSIS
     Dosage: SEE IMAGE
     Route: 011
     Dates: start: 20030101, end: 20040714
  2. AVONEX [Suspect]
     Indication: MULTIPLE SCLEROSIS
     Dosage: 30 UG;QW;IM
     Route: 030
     Dates: start: 20030101, end: 20040714
  3. TRANSTEC [Concomitant]
  4. VOLTAREN [Concomitant]
  5. VIGIL [Concomitant]
  6. TEMGESIC [Concomitant]

REACTIONS (5)
  - ANAEMIA [None]
  - INFLUENZA LIKE ILLNESS [None]
  - INJECTION SITE RASH [None]
  - PULMONARY EMBOLISM [None]
  - THROMBOSIS [None]
